FAERS Safety Report 11399517 (Version 1)
Quarter: 2015Q3

REPORT INFORMATION
  Report Type: Spontaneous
  Country: CN (occurrence: CN)
  Receive Date: 20150820
  Receipt Date: 20150820
  Transmission Date: 20151125
  Serious: Yes (Other)
  Sender: FDA-Public Use
  Company Number: CN-GILEAD-2015-0167897

PATIENT
  Sex: Female

DRUGS (5)
  1. HEPTODIN [Suspect]
     Active Substance: LAMIVUDINE
     Indication: HEPATITIS B E ANTIBODY POSITIVE
     Dosage: UNK
     Route: 048
  2. HEPTODIN [Suspect]
     Active Substance: LAMIVUDINE
     Indication: HEPATITIS B SURFACE ANTIGEN POSITIVE
     Dosage: 100 MG, QD
     Route: 048
     Dates: start: 2004
  3. HEPSERA [Suspect]
     Active Substance: ADEFOVIR DIPIVOXIL
     Indication: HEPATITIS B E ANTIBODY POSITIVE
  4. HEPSERA [Suspect]
     Active Substance: ADEFOVIR DIPIVOXIL
     Indication: HEPATITIS B SURFACE ANTIGEN POSITIVE
     Dosage: 10 MG, QD
     Route: 048
     Dates: start: 201507
  5. HEPTODIN [Suspect]
     Active Substance: LAMIVUDINE
     Indication: HEPATITIS B CORE ANTIBODY POSITIVE
     Dosage: UNK
     Route: 048

REACTIONS (11)
  - Disease recurrence [Recovering/Resolving]
  - Visual acuity reduced [Unknown]
  - Jaundice [Recovering/Resolving]
  - Mood altered [Unknown]
  - Drug dose omission [Unknown]
  - Hepatic function abnormal [Recovering/Resolving]
  - Asthenia [Unknown]
  - Drug administration error [Unknown]
  - Joint swelling [Unknown]
  - Drug resistance [Unknown]
  - Transaminases increased [Recovering/Resolving]

NARRATIVE: CASE EVENT DATE: 2015
